FAERS Safety Report 25539336 (Version 2)
Quarter: 2025Q4

REPORT INFORMATION
  Report Type: Report from Study
  Country: US (occurrence: US)
  Receive Date: 20250710
  Receipt Date: 20251128
  Transmission Date: 20260118
  Serious: Yes (Other)
  Sender: KYOWA
  Company Number: US-KYOWAKIRIN-2025KK013009

PATIENT

DRUGS (20)
  1. BUROSUMAB [Suspect]
     Active Substance: BUROSUMAB
     Indication: Mineral metabolism disorder
     Dosage: 90 MG, 1X/2 WEEKS (90 MG (3 X 30 MG VIALS) )
     Route: 058
  2. BUROSUMAB [Suspect]
     Active Substance: BUROSUMAB
     Indication: Osteomalacia
     Dosage: 90 MG, 1X/2 WEEKS (90 MG (3 X 30 MG VIALS) )
     Route: 058
  3. BUROSUMAB [Suspect]
     Active Substance: BUROSUMAB
     Indication: Phosphorus metabolism disorder
  4. BUROSUMAB [Suspect]
     Active Substance: BUROSUMAB
     Indication: Hereditary hypophosphataemic rickets
     Dosage: UNK, 1X/4 WEEKS
     Route: 065
  5. HYDROXYZINE HYDROCHLORIDE [Concomitant]
     Active Substance: HYDROXYZINE HYDROCHLORIDE
     Indication: Product used for unknown indication
     Dosage: 25 MG
     Route: 065
  6. EDARBYCLOR [Concomitant]
     Active Substance: AZILSARTAN KAMEDOXOMIL\CHLORTHALIDONE
     Indication: Product used for unknown indication
     Dosage: 40-12.5 MG TABLET
     Route: 065
  7. DICLOXACILLIN SODIUM [Concomitant]
     Active Substance: DICLOXACILLIN SODIUM
     Indication: Product used for unknown indication
     Dosage: 250 MG
     Route: 065
  8. BREYNA [Concomitant]
     Active Substance: BUDESONIDE\FORMOTEROL FUMARATE
     Indication: Product used for unknown indication
     Dosage: 160-4.5MCG HFA AER AD,
     Route: 065
  9. VITAMIN B COMPLEX WITH C [Concomitant]
     Active Substance: ASCORBIC ACID\CALCIUM PANTOTHENATE\CYANOCOBALAMIN\NIACINAMIDE\PYRIDOXINE HYDROCHLORIDE\RIBOFLAVIN\TH
     Indication: Product used for unknown indication
     Dosage: UNK
     Route: 065
  10. ALBUTEROL SULFATE [Concomitant]
     Active Substance: ALBUTEROL SULFATE
     Indication: Product used for unknown indication
     Dosage: UNK
     Route: 065
  11. CALCIUM CITRATE [Concomitant]
     Active Substance: CALCIUM CITRATE
     Indication: Product used for unknown indication
     Dosage: 200(950)MG
     Route: 065
  12. OLOPATADINE HYDROCHLORIDE [Concomitant]
     Active Substance: OLOPATADINE HYDROCHLORIDE
     Indication: Product used for unknown indication
     Dosage: 0.1 % DROPS
     Route: 065
  13. CHOLECALCIFEROL [Concomitant]
     Active Substance: CHOLECALCIFEROL
     Indication: Product used for unknown indication
     Dosage: 95 MCG-1MG TABLET
     Route: 065
  14. LEVOTHYROXINE SODIUM [Concomitant]
     Active Substance: LEVOTHYROXINE SODIUM
     Indication: Product used for unknown indication
     Dosage: 100 UG
     Route: 065
  15. XARELTO [Concomitant]
     Active Substance: RIVAROXABAN
     Indication: Product used for unknown indication
     Dosage: 20 MG
     Route: 065
  16. RIZATRIPTAN [Concomitant]
     Active Substance: RIZATRIPTAN
     Indication: Product used for unknown indication
     Dosage: 10 MG
     Route: 065
  17. LEVOCETIRIZINE DIHYDROCHLORIDE [Concomitant]
     Active Substance: LEVOCETIRIZINE DIHYDROCHLORIDE
     Indication: Product used for unknown indication
     Dosage: 500 MG
     Route: 065
  18. TRAMADOL HCL [Concomitant]
     Active Substance: TRAMADOL HYDROCHLORIDE
     Indication: Product used for unknown indication
     Dosage: 50 MG
     Route: 065
  19. ACETAZOLAMIDE [Concomitant]
     Active Substance: ACETAZOLAMIDE
     Indication: Product used for unknown indication
     Dosage: 500 MG CAPSULE SA (ER)
     Route: 065
  20. ACETAMINOPHEN [Concomitant]
     Active Substance: ACETAMINOPHEN
     Indication: Product used for unknown indication
     Dosage: 500 MG
     Route: 065

REACTIONS (4)
  - Bell^s palsy [Unknown]
  - Restless legs syndrome [Unknown]
  - Headache [Unknown]
  - Neck pain [Unknown]

NARRATIVE: CASE EVENT DATE: 20250601
